FAERS Safety Report 23260249 (Version 1)
Quarter: 2023Q4

REPORT INFORMATION
  Report Type: Report from Study
  Country: JP (occurrence: JP)
  Receive Date: 20231204
  Receipt Date: 20231204
  Transmission Date: 20240110
  Serious: Yes (Other)
  Sender: FDA-Public Use
  Company Number: JP-TAKEDA-2023TJP015413

PATIENT
  Age: 67 Year
  Sex: Female

DRUGS (2)
  1. PANITUMUMAB [Suspect]
     Active Substance: PANITUMUMAB
     Indication: Colon cancer recurrent
     Dosage: UNK, Q2WK
     Route: 042
     Dates: start: 20170725, end: 20170822
  2. PANITUMUMAB [Suspect]
     Active Substance: PANITUMUMAB
     Dosage: UNK, Q2WEEKS
     Route: 042
     Dates: start: 20170926

REACTIONS (21)
  - Anaemia [Unknown]
  - Hypomagnesaemia [Unknown]
  - Hypokalaemia [Unknown]
  - Dermatitis acneiform [Unknown]
  - Stomatitis [Unknown]
  - Decreased appetite [Unknown]
  - Fatigue [Unknown]
  - Bacteraemia [Unknown]
  - Rhabdomyolysis [Unknown]
  - Haemorrhoidal haemorrhage [Unknown]
  - Atrial fibrillation [Unknown]
  - Bladder disorder [Unknown]
  - Anorectal disorder [Unknown]
  - Hypoalbuminaemia [Unknown]
  - Cardiac failure [Unknown]
  - Blood creatinine increased [Unknown]
  - Dermatophytosis of nail [Unknown]
  - Anaemia [Unknown]
  - Constipation [Unknown]
  - Urinary tract infection [Unknown]
  - Hypokalaemia [Unknown]
